FAERS Safety Report 15315102 (Version 8)
Quarter: 2022Q2

REPORT INFORMATION
  Report Type: Spontaneous
  Country: US (occurrence: US)
  Receive Date: 20180824
  Receipt Date: 20220518
  Transmission Date: 20220721
  Serious: Yes (Other)
  Sender: FDA-Public Use
  Company Number: US-GLAXOSMITHKLINE-US2018GSK152820

PATIENT
  Sex: Male
  Weight: 173.33 kg

DRUGS (5)
  1. PREVACID 24 HR [Suspect]
     Active Substance: LANSOPRAZOLE
     Indication: Dyspepsia
     Dosage: 15 MG, UNK
     Route: 048
  2. PREVACID [Suspect]
     Active Substance: LANSOPRAZOLE
     Indication: Biliary colic
     Dosage: 30 MG, QD
     Route: 048
  3. PREVACID [Suspect]
     Active Substance: LANSOPRAZOLE
     Indication: Dyspepsia
  4. LANSOPRAZOLE [Suspect]
     Active Substance: LANSOPRAZOLE
     Indication: Product used for unknown indication
     Dosage: 30 MG, UNK
     Route: 048
  5. PREVACID [Suspect]
     Active Substance: LANSOPRAZOLE
     Indication: Product used for unknown indication
     Dosage: 30 MG, QD
     Route: 048

REACTIONS (18)
  - Chronic kidney disease [Unknown]
  - Renal impairment [Unknown]
  - Renal artery stenosis [Unknown]
  - Acute kidney injury [Unknown]
  - Cardiorenal syndrome [Unknown]
  - Hypertensive nephropathy [Unknown]
  - Renal failure [Unknown]
  - Azotaemia [Unknown]
  - Renal atrophy [Unknown]
  - Renal tubular necrosis [Unknown]
  - Kidney small [Unknown]
  - Renal cyst [Unknown]
  - Nephropathy [Unknown]
  - Proteinuria [Unknown]
  - Blood creatinine increased [Unknown]
  - Single functional kidney [Unknown]
  - Hyperuricaemia [Unknown]
  - Hypertensive heart disease [Unknown]

NARRATIVE: CASE EVENT DATE: 20150101
